FAERS Safety Report 5637107-7 (Version None)
Quarter: 2008Q1

REPORT INFORMATION
  Report Type: 
  Country: None (occurrence: None)
  Receive Date: 20080225
  Receipt Date: 20071016
  Transmission Date: 20080703
  Serious: No
  Sender: FDA-Public Use
  Company Number: US-BRISTOL-MYERS SQUIBB COMPANY-13944673

PATIENT
  Age: 81 Year
  Sex: Female
  Weight: 70 kg

DRUGS (10)
  1. GLUCOPHAGE [Suspect]
     Indication: DIABETES MELLITUS
     Dosage: 1 DOSAGE FORM=1 TABLET. DOSE WAS INCREASED TO 4TAB A DAY FOR LAST 7-10DAYS.
     Route: 048
  2. GLUCOTROL [Concomitant]
  3. POTASSIUM CHLORIDE [Concomitant]
  4. ALLOPURINOL [Concomitant]
  5. TOPROL [Concomitant]
  6. NIFEDIPINE [Concomitant]
  7. LYRICA [Concomitant]
  8. ASPIRIN [Concomitant]
  9. TRIAMTERENE [Concomitant]
  10. VYTORIN [Concomitant]

REACTIONS (1)
  - BLOOD GLUCOSE INCREASED [None]
